FAERS Safety Report 9441051 (Version 2)
Quarter: 2013Q4

REPORT INFORMATION
  Report Type: Report from Study
  Country: FR (occurrence: FR)
  Receive Date: 20130805
  Receipt Date: 20131008
  Transmission Date: 20140711
  Serious: Yes (Hospitalization)
  Sender: FDA-Public Use
  Company Number: FR-GLAXOSMITHKLINE-A0994979C

PATIENT
  Age: 68 Year
  Sex: Female
  Weight: 46.4 kg

DRUGS (2)
  1. TRAMETINIB [Suspect]
     Indication: NEOPLASM
     Dosage: 1.5MG PER DAY
     Route: 048
     Dates: start: 20120726
  2. PEMETREXED [Suspect]
     Indication: NEOPLASM
     Dosage: 500MGM2 CYCLIC
     Route: 042
     Dates: start: 20120726, end: 20121030

REACTIONS (5)
  - Skin infection [Recovered/Resolved]
  - Diarrhoea [Recovered/Resolved]
  - Hypercreatinaemia [Recovered/Resolved with Sequelae]
  - Dehydration [Recovered/Resolved]
  - Pyrexia [Recovered/Resolved with Sequelae]
